FAERS Safety Report 15874625 (Version 1)
Quarter: 2019Q1

REPORT INFORMATION
  Report Type: Other
  Country: US (occurrence: US)
  Receive Date: 20190126
  Receipt Date: 20190126
  Transmission Date: 20190417
  Serious: No
  Sender: FDA-Public Use
  Company Number: US-ACORDA-ACO_152948_2018

PATIENT
  Age: 46 Year
  Sex: Female

DRUGS (1)
  1. AMPYRA [Suspect]
     Active Substance: DALFAMPRIDINE
     Indication: MULTIPLE SCLEROSIS
     Dosage: 10 MG, BID
     Route: 048
     Dates: start: 20170713

REACTIONS (9)
  - Lactose intolerance [Unknown]
  - Diarrhoea [Unknown]
  - Uterine scar [Unknown]
  - Vomiting [Unknown]
  - Abdominal pain [Unknown]
  - Gluten sensitivity [Unknown]
  - Abdominal distension [Unknown]
  - Nausea [Unknown]
  - Urinary tract infection [Unknown]

NARRATIVE: CASE EVENT DATE: 20180619
